FAERS Safety Report 24650884 (Version 1)
Quarter: 2024Q4

REPORT INFORMATION
  Report Type: Spontaneous
  Country: RO (occurrence: RO)
  Receive Date: 20241122
  Receipt Date: 20241122
  Transmission Date: 20250115
  Serious: Yes (Other)
  Sender: ALKEM
  Company Number: RO-ALKEM LABORATORIES LIMITED-RO-ALKEM-2024-15211

PATIENT
  Age: 68 Year
  Sex: Male

DRUGS (6)
  1. ESCITALOPRAM [Interacting]
     Active Substance: ESCITALOPRAM OXALATE
     Indication: Bipolar disorder
     Dosage: UNK
     Route: 065
  2. ESCITALOPRAM [Interacting]
     Active Substance: ESCITALOPRAM OXALATE
     Dosage: 10 MILLIGRAM, QD (RE-ADMINISTRATION ON DAY 11)
     Route: 065
  3. OLANZAPINE [Interacting]
     Active Substance: OLANZAPINE
     Indication: Bipolar disorder
     Dosage: 10 MILLIGRAM, QD (DAY 5)
     Route: 065
  4. OLANZAPINE [Interacting]
     Active Substance: OLANZAPINE
     Dosage: UNK
     Route: 065
  5. OLANZAPINE [Interacting]
     Active Substance: OLANZAPINE
     Dosage: UNK (RESUMED)
     Route: 065
  6. VALPROATE SODIUM [Interacting]
     Active Substance: VALPROATE SODIUM
     Indication: Bipolar disorder
     Dosage: 1 GRAM, QD (OVER 5 YEARS)
     Route: 065

REACTIONS (5)
  - Acute kidney injury [Recovered/Resolved]
  - Rhabdomyolysis [Recovered/Resolved]
  - Drug interaction [Unknown]
  - Extrapyramidal disorder [Recovering/Resolving]
  - Tremor [Recovering/Resolving]
